FAERS Safety Report 22147745 (Version 2)
Quarter: 2023Q2

REPORT INFORMATION
  Report Type: Report from Study
  Country: US (occurrence: US)
  Receive Date: 20230328
  Receipt Date: 20230417
  Transmission Date: 20230722
  Serious: Yes (Other)
  Sender: FDA-Public Use
  Company Number: US-OTSUKA-2023_007856

PATIENT
  Age: 45 Year
  Sex: Female

DRUGS (3)
  1. TOLVAPTAN [Suspect]
     Active Substance: TOLVAPTAN
     Indication: Congenital cystic kidney disease
     Dosage: 15 MG, BID (AS DIRECTED BY PHYSICIAN)
     Route: 048
     Dates: start: 20230309
  2. LISINOPRIL [Concomitant]
     Active Substance: LISINOPRIL
     Indication: Product used for unknown indication
     Dosage: 20 MG
     Route: 065
  3. VITAMINS [Concomitant]
     Active Substance: VITAMINS
     Indication: Product used for unknown indication
     Dosage: UNK (TABLETS FOR WOMENS)
     Route: 065

REACTIONS (3)
  - Eye haemorrhage [Not Recovered/Not Resolved]
  - Pollakiuria [Unknown]
  - Underdose [Unknown]

NARRATIVE: CASE EVENT DATE: 20230309
